FAERS Safety Report 8048427-3 (Version None)
Quarter: 2012Q1

REPORT INFORMATION
  Report Type: 
  Country: None (occurrence: None)
  Receive Date: 20120117
  Receipt Date: 20120110
  Transmission Date: 20120608
  Serious: No
  Sender: FDA-Public Use
  Company Number: US-PFIZER INC-2011293909

PATIENT
  Sex: Female
  Weight: 86.168 kg

DRUGS (4)
  1. IBUPROFEN (ADVIL) [Suspect]
     Indication: BACK PAIN
  2. IBUPROFEN (ADVIL) [Suspect]
     Indication: HEADACHE
     Dosage: 200 MG, AS NEEDED
     Route: 048
     Dates: end: 20110501
  3. IBUPROFEN (ADVIL) [Suspect]
     Indication: NECK PAIN
  4. METAXALONE [Concomitant]
     Indication: BACK PAIN
     Dosage: UNK

REACTIONS (1)
  - NAUSEA [None]
